FAERS Safety Report 6717217-3 (Version None)
Quarter: 2010Q2

REPORT INFORMATION
  Report Type: 
  Country: None (occurrence: None)
  Receive Date: 20100510
  Receipt Date: 20100429
  Transmission Date: 20101027
  Serious: Yes (Other)
  Sender: FDA-Public Use
  Company Number: PHHY2010US28378

PATIENT
  Sex: Female

DRUGS (2)
  1. RECLAST [Suspect]
     Dosage: 5 MG
     Route: 042
     Dates: start: 20080101
  2. RECLAST [Suspect]
     Dosage: 5 MG
     Route: 042
     Dates: start: 20100329

REACTIONS (1)
  - ORAL CAVITY FISTULA [None]
